FAERS Safety Report 7510956-6 (Version None)
Quarter: 2011Q2

REPORT INFORMATION
  Report Type: 
  Country: None (occurrence: None)
  Receive Date: 20110531
  Receipt Date: 20110526
  Transmission Date: 20111010
  Serious: No
  Sender: FDA-Public Use
  Company Number: US-PFIZER INC-2011115500

PATIENT
  Age: 77 Year
  Sex: Male

DRUGS (5)
  1. LORTAB [Concomitant]
     Dosage: 10 MG, 3X/DAY
  2. LYRICA [Suspect]
     Indication: POST HERPETIC NEURALGIA
     Dosage: 100 MG, 2X/DAY
     Route: 048
     Dates: start: 20110228, end: 20110301
  3. FENTANYL [Concomitant]
     Dosage: 25 MG, EVERY THREE DAYS
  4. NEURONTIN [Concomitant]
     Dosage: UNK
  5. OXYCONTIN [Concomitant]
     Dosage: 20 MG, AS NEEDED

REACTIONS (2)
  - RASH [None]
  - FEELING HOT [None]
